FAERS Safety Report 8842117 (Version 2)
Quarter: 2012Q4

REPORT INFORMATION
  Report Type: 
  Country: US (occurrence: US)
  Receive Date: 20121016
  Receipt Date: 20121031
  Transmission Date: 20130627
  Serious: Yes (Death)
  Sender: FDA-Public Use
  Company Number: US-BRISTOL-MYERS SQUIBB COMPANY-17023755

PATIENT
  Age: 39 Year
  Sex: Male
  Weight: 102 kg

DRUGS (5)
  1. BARACLUDE [Suspect]
     Indication: HEPATITIS B
     Dates: start: 20120704, end: 20120725
  2. ZOLOFT [Concomitant]
  3. METOPROLOL [Concomitant]
  4. SUBOXONE [Concomitant]
  5. AMOXICILLIN [Concomitant]

REACTIONS (1)
  - Septic shock [Fatal]
